FAERS Safety Report 6654730-1 (Version None)
Quarter: 2010Q1

REPORT INFORMATION
  Report Type: 
  Country: None (occurrence: None)
  Receive Date: 20100326
  Receipt Date: 20100315
  Transmission Date: 20100710
  Serious: Yes (Hospitalization, Other)
  Sender: FDA-Public Use
  Company Number: AU-WATSON-2010-03296

PATIENT
  Age: 36 Year
  Sex: Male
  Weight: 80 kg

DRUGS (2)
  1. LIDOCAINE 1% W/ EPINEPHRINE 1:200,000 [Suspect]
     Indication: PAIN IN EXTREMITY
     Dosage: 1% (1:200,000)
     Route: 030
  2. BUPIVACAINE HCL [Suspect]
     Indication: PAIN IN EXTREMITY
     Dosage: 0.5%
     Route: 030

REACTIONS (8)
  - BLOOD PRESSURE INCREASED [None]
  - DIPLOPIA [None]
  - DIZZINESS [None]
  - ELECTROCARDIOGRAM ST SEGMENT DEPRESSION [None]
  - HEADACHE [None]
  - HEART RATE INCREASED [None]
  - NEUROTOXICITY [None]
  - PARAESTHESIA ORAL [None]
